FAERS Safety Report 8925728 (Version 1)
Quarter: 2012Q4

REPORT INFORMATION
  Report Type: 
  Country: FR (occurrence: FR)
  Receive Date: 20121126
  Receipt Date: 20121126
  Transmission Date: 20130627
  Serious: Yes (Life-Threatening)
  Sender: FDA-Public Use
  Company Number: FR-ASTRAZENECA-2012SE88110

PATIENT
  Age: 56 Year
  Sex: Male

DRUGS (5)
  1. DIPRIVAN [Suspect]
     Indication: ANAESTHESIA
     Dosage: Once/Single administration
     Route: 042
     Dates: start: 20120519, end: 20120529
  2. SUFENTANIL [Suspect]
     Indication: ANAESTHESIA
     Dosage: Once/Single administration
     Route: 042
     Dates: start: 20120519, end: 20120529
  3. NIMBEX [Suspect]
     Indication: ANAESTHESIA
     Dosage: Once/Single administration
     Route: 042
     Dates: start: 20120519, end: 20120529
  4. AUGMENTIN [Suspect]
     Indication: ANTIBIOTIC PROPHYLAXIS
     Route: 048
     Dates: start: 201205, end: 201205
  5. ORELOX [Concomitant]

REACTIONS (2)
  - Cardiac arrest [Recovered/Resolved]
  - Anaphylactic shock [Recovered/Resolved]
